FAERS Safety Report 9437276 (Version 1)
Quarter: 2013Q3

REPORT INFORMATION
  Report Type: Spontaneous
  Country: DE (occurrence: DE)
  Receive Date: 20130802
  Receipt Date: 20130802
  Transmission Date: 20140515
  Serious: Yes (Other)
  Sender: FDA-Public Use
  Company Number: PHHY2013DE082426

PATIENT
  Sex: Male

DRUGS (1)
  1. GLIVEC [Suspect]
     Dosage: 400 MG, UNK

REACTIONS (1)
  - Cerebral infarction [Unknown]
